FAERS Safety Report 15417164 (Version 1)
Quarter: 2018Q3

REPORT INFORMATION
  Report Type: Spontaneous
  Country: US (occurrence: US)
  Receive Date: 20180924
  Receipt Date: 20180924
  Transmission Date: 20181010
  Serious: Yes (Other)
  Sender: FDA-Public Use
  Company Number: US-ROCHE-2186240

PATIENT
  Age: 55 Year
  Sex: Female
  Weight: 85 kg

DRUGS (6)
  1. TAXOL [Concomitant]
     Active Substance: PACLITAXEL
     Indication: HER-2 POSITIVE BREAST CANCER
     Dosage: ONGOING: UNKNOWN
     Route: 065
  2. PERJETA [Suspect]
     Active Substance: PERTUZUMAB
     Indication: HER-2 POSITIVE BREAST CANCER
     Dosage: ONGOING: UNKNOWN
     Route: 065
  3. TAXOL [Concomitant]
     Active Substance: PACLITAXEL
     Indication: NEOADJUVANT THERAPY
  4. HERCEPTIN [Suspect]
     Active Substance: TRASTUZUMAB
     Indication: NEOADJUVANT THERAPY
  5. PERJETA [Suspect]
     Active Substance: PERTUZUMAB
     Indication: NEOADJUVANT THERAPY
  6. HERCEPTIN [Suspect]
     Active Substance: TRASTUZUMAB
     Indication: HER-2 POSITIVE BREAST CANCER
     Dosage: ONGOING: UNKNOWN
     Route: 065

REACTIONS (1)
  - Pneumonitis [Not Recovered/Not Resolved]

NARRATIVE: CASE EVENT DATE: 20180907
